FAERS Safety Report 23768434 (Version 1)
Quarter: 2024Q2

REPORT INFORMATION
  Report Type: Spontaneous
  Country: US (occurrence: US)
  Receive Date: 20240422
  Receipt Date: 20240422
  Transmission Date: 20240716
  Serious: No
  Sender: FDA-Public Use
  Company Number: US-MELINTA THERAPEUTICS, LLC-US-MLNT-23-00461

PATIENT
  Age: 75 Year
  Sex: Female

DRUGS (2)
  1. METOPROLOL SUCCINATE [Suspect]
     Active Substance: METOPROLOL SUCCINATE
     Indication: Hypertrophic cardiomyopathy
     Dosage: 12.5 MG IN THE MORNING AND 12.5 MG IN THE EVENING
     Route: 048
  2. METOPROLOL SUCCINATE [Suspect]
     Active Substance: METOPROLOL SUCCINATE
     Indication: Arrhythmia

REACTIONS (6)
  - Atrial fibrillation [Unknown]
  - Atrial flutter [Unknown]
  - Cardiac pacemaker insertion [Unknown]
  - Off label use [Unknown]
  - Off label use [Unknown]
  - Drug ineffective for unapproved indication [Unknown]

NARRATIVE: CASE EVENT DATE: 20230201
